FAERS Safety Report 16426862 (Version 1)
Quarter: 2019Q3

REPORT INFORMATION
  Report Type: Spontaneous
  Country: US (occurrence: US)
  Receive Date: 20190612
  Receipt Date: 20190612
  Transmission Date: 20191004
  Serious: Yes (Life-Threatening)
  Sender: FDA-Public Use
  Company Number: None

PATIENT
  Age: 33 Year
  Sex: Female
  Weight: 79.9 kg

DRUGS (1)
  1. RHOPHYLAC [Suspect]
     Active Substance: HUMAN RHO(D) IMMUNE GLOBULIN
     Indication: MATERNAL CONDITION AFFECTING FOETUS
     Dosage: ?          OTHER FREQUENCY:ONCE;?
     Route: 030
     Dates: start: 20190501, end: 20190501

REACTIONS (5)
  - Vomiting [None]
  - Nausea [None]
  - Pregnancy [None]
  - Angioedema [None]
  - Chest pain [None]

NARRATIVE: CASE EVENT DATE: 20190602
